FAERS Safety Report 19476915 (Version 1)
Quarter: 2021Q2

REPORT INFORMATION
  Report Type: Spontaneous
  Country: US (occurrence: US)
  Receive Date: 20210629
  Receipt Date: 20210629
  Transmission Date: 20210717
  Serious: Yes (Disabling)
  Sender: FDA-Public Use
  Company Number: None

PATIENT
  Age: 63 Year
  Sex: Female
  Weight: 56.25 kg

DRUGS (11)
  1. VITAMIN B COMPLEX [Concomitant]
     Active Substance: CYANOCOBALAMIN\DEXPANTHENOL\NIACINAMIDE\PYRIDOXINE HYDROCHLORIDE\RIBOFLAVIN 5^-PHOSPHATE SODIUM\THIAMINE HYDROCHLORIDE\VITAMIN B COMPLEX
  2. PROLIA [Concomitant]
     Active Substance: DENOSUMAB
  3. CALCIUM [Concomitant]
     Active Substance: CALCIUM
  4. MINOCYCLINE [Concomitant]
     Active Substance: MINOCYCLINE HYDROCHLORIDE
  5. VITAMIN D [Concomitant]
     Active Substance: VITAMIN D NOS
  6. VITAMIN C [Concomitant]
     Active Substance: ASCORBIC ACID
  7. MULTI VITAMIN [Concomitant]
     Active Substance: VITAMINS
  8. PROBIOTIC [Concomitant]
     Active Substance: PROBIOTICS NOS
  9. OCREVUS [Suspect]
     Active Substance: OCRELIZUMAB
     Indication: MULTIPLE SCLEROSIS
     Dosage: ?          OTHER FREQUENCY:EVERY 6 MONTHS;?
     Route: 042
     Dates: start: 20200324, end: 20201112
  10. TUMERIC [Concomitant]
     Active Substance: HERBALS\TURMERIC
  11. MELOXICAM. [Concomitant]
     Active Substance: MELOXICAM

REACTIONS (15)
  - Dry skin [None]
  - Muscle tightness [None]
  - Vision blurred [None]
  - Urinary tract infection [None]
  - Endodontic procedure [None]
  - Ovarian cyst [None]
  - Psoriasis [None]
  - Vitreous floaters [None]
  - Limb discomfort [None]
  - Arthralgia [None]
  - Mobility decreased [None]
  - Periodontal disease [None]
  - Skin discolouration [None]
  - Walking aid user [None]
  - Muscle spasms [None]

NARRATIVE: CASE EVENT DATE: 20200430
